FAERS Safety Report 5336697-1 (Version None)
Quarter: 2007Q2

REPORT INFORMATION
  Report Type: 
  Country: None (occurrence: None)
  Receive Date: 20070524
  Receipt Date: 20070524
  Transmission Date: 20071010
  Serious: Yes (Hospitalization)
  Sender: FDA-Public Use
  Company Number: None

PATIENT
  Age: 42 Year
  Sex: Male

DRUGS (10)
  1. WARFARIN SODIUM [Suspect]
     Indication: DEEP VEIN THROMBOSIS
     Dosage: 4 MG ALT 5 MG DAILY PO
     Route: 048
     Dates: start: 20010101
  2. WARFARIN SODIUM [Suspect]
     Indication: PULMONARY EMBOLISM
     Dosage: 4 MG ALT 5 MG DAILY PO
     Route: 048
     Dates: start: 20010101
  3. LEVOFLOXACIN [Suspect]
     Indication: BRONCHITIS
     Dosage: DAILY PO
     Route: 048
  4. PREDNISONE TAB [Concomitant]
  5. ZETIA [Concomitant]
  6. ACIPHEX [Concomitant]
  7. PRAVACHOL [Concomitant]
  8. CALCIUM CHLORIDE [Concomitant]
  9. METHOTREXATE [Concomitant]
  10. ATENOLOL [Concomitant]

REACTIONS (4)
  - DIZZINESS [None]
  - HAEMATOCHEZIA [None]
  - HAEMATURIA [None]
  - INTERNATIONAL NORMALISED RATIO INCREASED [None]
